FAERS Safety Report 10727689 (Version 1)
Quarter: 2015Q1

REPORT INFORMATION
  Report Type: Spontaneous
  Country: IT (occurrence: IT)
  Receive Date: 20150121
  Receipt Date: 20150121
  Transmission Date: 20150721
  Serious: Yes (Other)
  Sender: FDA-Public Use
  Company Number: IT-ABBVIE-15P-083-1335693-00

PATIENT
  Age: 55 Year
  Sex: Female
  Weight: 63 kg

DRUGS (4)
  1. MACLADIN [Suspect]
     Active Substance: CLARITHROMYCIN
     Indication: ASTHMA
     Route: 048
  2. ALIFLUS [Suspect]
     Active Substance: FLUTICASONE PROPIONATE\SALMETEROL XINAFOATE
     Indication: ASTHMA
     Route: 048
  3. MACLADIN [Suspect]
     Active Substance: CLARITHROMYCIN
     Indication: BRONCHOPNEUMONIA
     Route: 048
     Dates: start: 20141112, end: 20141119
  4. ALIFLUS [Suspect]
     Active Substance: FLUTICASONE PROPIONATE\SALMETEROL XINAFOATE
     Indication: BRONCHOPNEUMONIA
     Dosage: FORM STRENGTH: 50/500
     Route: 048
     Dates: start: 20141101, end: 20141121

REACTIONS (3)
  - Chest pain [Recovering/Resolving]
  - Tachyarrhythmia [Recovering/Resolving]
  - Dyspnoea exertional [Recovering/Resolving]

NARRATIVE: CASE EVENT DATE: 20141117
